FAERS Safety Report 9490636 (Version 1)
Quarter: 2013Q3

REPORT INFORMATION
  Report Type: Spontaneous
  Country: US (occurrence: None)
  Receive Date: 20130828
  Receipt Date: 20130828
  Transmission Date: 20140515
  Serious: Yes (Hospitalization)
  Sender: FDA-Public Use
  Company Number: None

PATIENT
  Age: 73 Year
  Sex: Female
  Weight: 70 kg

DRUGS (1)
  1. LEVOFLOXACIN [Suspect]
     Indication: BRONCHITIS
     Dosage: ONE PER DAY
     Dates: start: 20130518, end: 20130520

REACTIONS (7)
  - Abasia [None]
  - Tremor [None]
  - Ataxia [None]
  - Toxic encephalopathy [None]
  - Vestibular disorder [None]
  - Dysstasia [None]
  - Dysgraphia [None]
